FAERS Safety Report 16834596 (Version 1)
Quarter: 2019Q3

REPORT INFORMATION
  Report Type: Spontaneous
  Country: US (occurrence: US)
  Receive Date: 20190920
  Receipt Date: 20190920
  Transmission Date: 20191005
  Serious: Yes (Hospitalization)
  Sender: FDA-Public Use
  Company Number: US-TAKEDA-2019TUS052569

PATIENT
  Age: 34 Year
  Sex: Female
  Weight: 96.62 kg

DRUGS (1)
  1. ENTYVIO [Suspect]
     Active Substance: VEDOLIZUMAB
     Indication: CROHN^S DISEASE
     Dosage: 300 MILLIGRAM
     Route: 042
     Dates: start: 20180401

REACTIONS (3)
  - Pain [Unknown]
  - Off label use [Unknown]
  - Pregnancy [Unknown]

NARRATIVE: CASE EVENT DATE: 20180401
